FAERS Safety Report 23642716 (Version 6)
Quarter: 2024Q3

REPORT INFORMATION
  Report Type: Spontaneous
  Country: CA (occurrence: CA)
  Receive Date: 20240318
  Receipt Date: 20240720
  Transmission Date: 20241017
  Serious: Yes (Other)
  Sender: CELLTRION
  Company Number: CA-CELLTRION INC.-2024CA006541

PATIENT

DRUGS (6)
  1. INFLECTRA [Suspect]
     Active Substance: INFLIXIMAB-DYYB
     Indication: Colitis ulcerative
     Dosage: 5 MG/KG, 0, 2, 6, THEN EVERY 8 WEEKS
     Route: 042
     Dates: start: 20220413, end: 20230105
  2. INFLECTRA [Suspect]
     Active Substance: INFLIXIMAB-DYYB
     Dosage: 5 MG/KG, EVERY 6 WEEKS
     Route: 042
     Dates: start: 20230217, end: 20230619
  3. INFLECTRA [Suspect]
     Active Substance: INFLIXIMAB-DYYB
     Dosage: 5 MG/KG, EVERY 4 WEEKS
     Route: 042
     Dates: start: 20230918
  4. INFLECTRA [Suspect]
     Active Substance: INFLIXIMAB-DYYB
     Dosage: 5 MG/KG, EVERY 4 WEEKS
     Route: 042
     Dates: start: 20240212
  5. INFLECTRA [Suspect]
     Active Substance: INFLIXIMAB-DYYB
     Dosage: 805 MG (10 MG/KG), WEEK 0 REINDUCTION (REINDUCTION AT 0, 2 AND 6 WEEKS THEN Q 4 WEEKS)
     Route: 042
     Dates: start: 20240627
  6. DIPHENHYDRAMINE [Concomitant]
     Active Substance: DIPHENHYDRAMINE
     Indication: Premedication
     Dosage: 50 MG
     Route: 042
     Dates: start: 20240627

REACTIONS (8)
  - Prostate cancer [Not Recovered/Not Resolved]
  - Sinusitis [Not Recovered/Not Resolved]
  - Pruritus [Recovered/Resolved]
  - Rash macular [Recovered/Resolved]
  - Chills [Unknown]
  - Pharyngitis [Unknown]
  - Pyrexia [Unknown]
  - Off label use [Unknown]

NARRATIVE: CASE EVENT DATE: 20240101
